FAERS Safety Report 11549133 (Version 1)
Quarter: 2015Q3

REPORT INFORMATION
  Report Type: Spontaneous
  Country: US (occurrence: US)
  Receive Date: 20150924
  Receipt Date: 20150924
  Transmission Date: 20151125
  Serious: No
  Sender: FDA-Public Use
  Company Number: US-INCYTE CORPORATION-2015IN001782

PATIENT
  Age: 70 Year
  Sex: Female

DRUGS (1)
  1. JAKAFI [Suspect]
     Active Substance: RUXOLITINIB
     Indication: MYELOFIBROSIS
     Dosage: 5 MG, BID
     Route: 048
     Dates: start: 20150402

REACTIONS (4)
  - Localised infection [Recovered/Resolved]
  - Animal bite [Recovered/Resolved]
  - Weight increased [Unknown]
  - Viral infection [Unknown]

NARRATIVE: CASE EVENT DATE: 20150409
